FAERS Safety Report 15798550 (Version 1)
Quarter: 2019Q1

REPORT INFORMATION
  Report Type: Spontaneous
  Country: BR (occurrence: BR)
  Receive Date: 20190108
  Receipt Date: 20190108
  Transmission Date: 20190417
  Serious: Yes (Other)
  Sender: FDA-Public Use
  Company Number: BR-SA-2019SA004092

PATIENT
  Sex: Female
  Weight: 68 kg

DRUGS (5)
  1. BUSCOPAN [Concomitant]
     Active Substance: BUTYLSCOPOLAMINE BROMIDE
     Indication: ABDOMINAL PAIN UPPER
     Dosage: UNK UNK, QW
     Route: 048
     Dates: start: 201811
  2. BENICAR AMLO [Concomitant]
     Active Substance: AMLODIPINE BESYLATE\OLMESARTAN MEDOXOMIL
     Indication: HYPERTENSION
     Dosage: 1 IN THE MORNING AND 1 IN THE AFTERNOON
     Route: 048
  3. GALVUS MET [Concomitant]
     Active Substance: METFORMIN HYDROCHLORIDE\VILDAGLIPTIN
     Indication: DIABETES MELLITUS MANAGEMENT
     Dosage: 1 IN THE MORNING AND 1 IN THE AFTERNOON
     Route: 048
  4. ATENOLOL. [Concomitant]
     Active Substance: ATENOLOL
     Indication: INFARCTION
     Dosage: ONLY WHEN HER PRESSURE IS HIGH
     Route: 048
  5. AMARYL [Suspect]
     Active Substance: GLIMEPIRIDE
     Indication: TYPE 2 DIABETES MELLITUS
     Dosage: ONE TABLET IN MORNING ONE AT NIGHT
     Route: 048
     Dates: start: 2009

REACTIONS (6)
  - Pancreatic disorder [Unknown]
  - Intentional product misuse [Unknown]
  - Drug ineffective [Unknown]
  - Pain [Unknown]
  - Hyperglycaemia [Unknown]
  - Bone disorder [Unknown]
